FAERS Safety Report 19268915 (Version 1)
Quarter: 2021Q2

REPORT INFORMATION
  Report Type: Spontaneous
  Country: US (occurrence: US)
  Receive Date: 20210518
  Receipt Date: 20210518
  Transmission Date: 20210717
  Serious: Yes (Hospitalization)
  Sender: FDA-Public Use
  Company Number: None

PATIENT
  Age: 49 Year
  Sex: Female
  Weight: 99.3 kg

DRUGS (1)
  1. DULOXENTINE HYDROCHLORIDE [Suspect]
     Active Substance: DULOXETINE HYDROCHLORIDE
     Dates: end: 20210317

REACTIONS (2)
  - Small intestinal obstruction [None]
  - Large intestinal obstruction [None]

NARRATIVE: CASE EVENT DATE: 20210509
